FAERS Safety Report 5694403-5 (Version None)
Quarter: 2008Q2

REPORT INFORMATION
  Report Type: 
  Country: None (occurrence: None)
  Receive Date: 20080403
  Receipt Date: 20080403
  Transmission Date: 20081010
  Serious: Yes (Hospitalization)
  Sender: FDA-Public Use
  Company Number: None

PATIENT
  Sex: Female
  Weight: 73 kg

DRUGS (2)
  1. CARBOPLATIN [Suspect]
     Dosage: 525 MG
  2. TAXOL [Suspect]
     Dosage: 322 MG

REACTIONS (10)
  - ARTERIOSCLEROSIS CORONARY ARTERY [None]
  - BLOOD POTASSIUM DECREASED [None]
  - DEHYDRATION [None]
  - EMPHYSEMA [None]
  - ENDOMETRIAL CANCER METASTATIC [None]
  - FAILURE TO THRIVE [None]
  - HAEMOGLOBIN DECREASED [None]
  - HYPOKALAEMIA [None]
  - METASTASES TO LUNG [None]
  - PNEUMONITIS [None]
